FAERS Safety Report 8766253 (Version 3)
Quarter: 2013Q1

REPORT INFORMATION
  Report Type: Spontaneous
  Country: US (occurrence: US)
  Receive Date: 20120904
  Receipt Date: 20130306
  Transmission Date: 20140127
  Serious: Yes (Life-Threatening, Other)
  Sender: FDA-Public Use
  Company Number: US-ASTRAZENECA-2012SE65771

PATIENT
  Age: 56 Year
  Sex: Female
  Weight: 117.9 kg

DRUGS (16)
  1. NEXIUM [Suspect]
     Indication: GASTROOESOPHAGEAL REFLUX DISEASE
     Dosage: ONCE DAILY
     Route: 048
     Dates: start: 2010, end: 2011
  2. NEXIUM [Suspect]
     Indication: GASTROOESOPHAGEAL REFLUX DISEASE
     Route: 048
  3. SEROQUEL [Suspect]
     Indication: DEPRESSION
     Route: 048
  4. SEROQUEL [Suspect]
     Indication: ANXIETY
     Route: 048
  5. VITAMIN B12 INJECTION [Concomitant]
     Dosage: 1000 MONTH
  6. PROAIR HFA [Concomitant]
  7. HYDROCODONE [Concomitant]
     Dosage: 10 PER 25 MG Q4H AS REQUIRED
  8. LORATIDINE [Concomitant]
  9. PRAVASTATIN [Concomitant]
     Indication: BLOOD CHOLESTEROL ABNORMAL
  10. LEVOTHYROXINE [Concomitant]
     Indication: THYROID DISORDER
  11. OXYBUTYNIN [Concomitant]
     Indication: UROGENITAL DISORDER
  12. ALPRAZOLAM [Concomitant]
  13. BENLAFAXINE HCL [Concomitant]
  14. RANITIDINE [Concomitant]
     Indication: GASTROOESOPHAGEAL REFLUX DISEASE
  15. MELOXICAM [Concomitant]
     Indication: ARTHRITIS
  16. CYCLOBENZAPRINE [Concomitant]

REACTIONS (14)
  - Suicide attempt [Unknown]
  - Feeling abnormal [Unknown]
  - Crying [Unknown]
  - Anger [Unknown]
  - Influenza [Unknown]
  - Fall [Unknown]
  - Gastrooesophageal reflux disease [Unknown]
  - Arthritis [Unknown]
  - Sleep disorder due to a general medical condition [Unknown]
  - Weight increased [Unknown]
  - Psychomotor hyperactivity [Unknown]
  - Dyspepsia [Unknown]
  - Vomiting [Unknown]
  - Drug dose omission [Unknown]
